FAERS Safety Report 5792526-3 (Version None)
Quarter: 2008Q2

REPORT INFORMATION
  Report Type: 
  Country: None (occurrence: None)
  Receive Date: 20080624
  Receipt Date: 20080610
  Transmission Date: 20081010
  Serious: Yes (Other)
  Sender: FDA-Public Use
  Company Number: 230001J07SWE

PATIENT
  Age: 46 Year
  Sex: Female

DRUGS (3)
  1. REBIF [Suspect]
     Indication: MULTIPLE SCLEROSIS
     Dosage: 44 MCG, 3 IN 1 WEEKS
     Dates: start: 20050117
  2. BACLOFEN [Concomitant]
  3. AMITRIPTYLINE HYDROCHLORIDE [Concomitant]

REACTIONS (2)
  - BREAST CANCER METASTATIC [None]
  - METASTASES TO LYMPH NODES [None]
